FAERS Safety Report 14872558 (Version 1)
Quarter: 2018Q2

REPORT INFORMATION
  Report Type: Report from Study
  Country: US (occurrence: US)
  Receive Date: 20180510
  Receipt Date: 20180510
  Transmission Date: 20180711
  Serious: No
  Sender: FDA-Public Use
  Company Number: US-AMGEN-USASL2018061772

PATIENT
  Age: 45 Year
  Sex: Female

DRUGS (1)
  1. ENBREL [Suspect]
     Active Substance: ETANERCEPT
     Indication: RHEUMATOID ARTHRITIS
     Dosage: 50 MG, QWK
     Route: 065

REACTIONS (6)
  - Cold sweat [Unknown]
  - Sciatica [Unknown]
  - Injection site swelling [Unknown]
  - Injection site erythema [Unknown]
  - Pyrexia [Unknown]
  - Injection site warmth [Unknown]

NARRATIVE: CASE EVENT DATE: 2018
